FAERS Safety Report 25315323 (Version 2)
Quarter: 2025Q2

REPORT INFORMATION
  Report Type: Spontaneous
  Country: GB (occurrence: GB)
  Receive Date: 20250514
  Receipt Date: 20250604
  Transmission Date: 20250717
  Serious: Yes (Hospitalization, Other)
  Sender: MERCK SHARP & DOHME LLC
  Company Number: None

PATIENT
  Age: 55 Year
  Sex: Female

DRUGS (14)
  1. PEMBROLIZUMAB [Suspect]
     Active Substance: PEMBROLIZUMAB
     Dosage: 202MLS/HR INTRAVENOUS INFUSION
     Route: 042
  2. HYDROXOCOBALAMIN [Suspect]
     Active Substance: HYDROXOCOBALAMIN
     Route: 030
  3. CARBOPLATIN [Suspect]
     Active Substance: CARBOPLATIN
     Dosage: 563MLS/HR IV INFUSION
     Route: 042
  4. Zomorph 10 mg modified-release capsules [Concomitant]
  5. DEXTROSE [Concomitant]
     Active Substance: DEXTROSE MONOHYDRATE
  6. Morphine sulfate 10 mg / 5 ml oral solution [Concomitant]
  7. Senna 7.5mg tablets (A A H Pharmaceuticals Ltd) [Concomitant]
  8. CITALOPRAM [Concomitant]
     Active Substance: CITALOPRAM
  9. CITALOPRAM [Concomitant]
     Active Substance: CITALOPRAM
  10. PEMETREXED DISODIUM [Suspect]
     Active Substance: PEMETREXED DISODIUM
     Dosage: 816MLS/HR
  11. DEXAMETHASONE [Suspect]
     Active Substance: DEXAMETHASONE
     Route: 042
  12. ONDANSETRON [Suspect]
     Active Substance: ONDANSETRON
     Route: 048
  13. OMEPRAZOLE [Concomitant]
     Active Substance: OMEPRAZOLE
  14. OMEPRAZOLE [Concomitant]
     Active Substance: OMEPRAZOLE

REACTIONS (4)
  - Vomiting [Unknown]
  - Malaise [Unknown]
  - Haematemesis [Unknown]
  - Diarrhoea [Unknown]
